FAERS Safety Report 13325790 (Version 1)
Quarter: 2017Q1

REPORT INFORMATION
  Report Type: Spontaneous
  Country: US (occurrence: US)
  Receive Date: 20170310
  Receipt Date: 20170310
  Transmission Date: 20170428
  Serious: No
  Sender: FDA-Public Use
  Company Number: US-ALLERMED LABORATORIES, INC.-1064136

PATIENT
  Age: 56 Year
  Sex: Male

DRUGS (16)
  1. ALTERNARIA [Suspect]
     Active Substance: ALTERNARIA ALTERNATA
     Indication: MULTIPLE ALLERGIES
     Route: 023
     Dates: start: 20161216
  2. WHITE OAK [Suspect]
     Active Substance: QUERCUS ALBA POLLEN
     Route: 023
     Dates: start: 20161216
  3. WHITE HICKORY [Suspect]
     Active Substance: CARYA TOMENTOSA POLLEN
     Route: 023
     Dates: start: 20161216
  4. SINGULAIR [Concomitant]
     Active Substance: MONTELUKAST SODIUM
     Route: 048
  5. GRAIN SMUT MIXTURE [Suspect]
     Active Substance: USTILAGO AVENAE\USTILAGO MAYDIS\USTILAGO NUDA HORDEI\USTILAGO TRITICI
     Route: 023
     Dates: start: 20161216
  6. STANDARDIZED BERMUDA GRASS [Suspect]
     Active Substance: CYNODON DACTYLON POLLEN
     Route: 023
     Dates: start: 20161216
  7. POLLENS - TREES, WALNUT, BLACK JUGLANS NIGRA [Suspect]
     Active Substance: JUGLANS NIGRA POLLEN
     Route: 023
     Dates: start: 20161216
  8. ZETIA [Concomitant]
     Active Substance: EZETIMIBE
     Route: 048
  9. RED YEAST RICE [Concomitant]
     Active Substance: DIETARY SUPPLEMENT
     Route: 048
  10. POLLENS - GRASSES, BAHIA GRASS PASPALUM NOTATUM [Suspect]
     Active Substance: PASPALUM NOTATUM POLLEN
     Route: 023
     Dates: start: 20161216
  11. MOLDS, RUSTS AND SMUTS, STEMPHYLIUM SOLANI [Suspect]
     Active Substance: STEMPHYLIUM SOLANI
     Route: 023
     Dates: start: 20161216
  12. POLLENS - TREES, CEDAR, MOUNTAIN JUNIPERUS ASHEI [Suspect]
     Active Substance: JUNIPERUS ASHEI POLLEN
     Route: 023
     Dates: start: 20161216
  13. POLLENS - WEEDS AND GARDEN PLANTS, RAGWEED, GIANT AMBROSIA TRIFIDA [Suspect]
     Active Substance: AMBROSIA TRIFIDA POLLEN
     Route: 023
     Dates: start: 20161216
  14. MULTIVITAMIN [Concomitant]
     Active Substance: VITAMINS
     Route: 048
  15. FINASTERIDE. [Concomitant]
     Active Substance: FINASTERIDE
     Route: 048
  16. POLLENS - WEEDS AND GARDEN PLANTS, SHORT RAGWEED, AMBROSIA ARTEMISIIFOLIA [Suspect]
     Active Substance: AMBROSIA ARTEMISIIFOLIA POLLEN
     Route: 023
     Dates: start: 20161216

REACTIONS (1)
  - Injection site urticaria [Recovered/Resolved]

NARRATIVE: CASE EVENT DATE: 20161216
